FAERS Safety Report 4288095-X (Version None)
Quarter: 2004Q1

REPORT INFORMATION
  Report Type: 
  Country: None (occurrence: None)
  Receive Date: 20040209
  Receipt Date: 20030815
  Transmission Date: 20041129
  Serious: No
  Sender: FDA-Public Use
  Company Number: US-GLAXOSMITHKLINE-A0422218A

PATIENT
  Age: 44 Year
  Sex: Male

DRUGS (6)
  1. PAXIL [Suspect]
     Indication: DEPRESSION
     Dosage: 20MG PER DAY
     Route: 048
     Dates: start: 20030201
  2. LEVOXYL [Concomitant]
  3. MULTIVITAMIN [Concomitant]
  4. PEGYLATED INTERFERON ALPHA 2B [Concomitant]
     Route: 042
  5. IBUPROFEN [Concomitant]
  6. ACETAMINOPHEN [Concomitant]

REACTIONS (2)
  - CARDIAC FLUTTER [None]
  - WEIGHT INCREASED [None]
